FAERS Safety Report 22175051 (Version 12)
Quarter: 2024Q2

REPORT INFORMATION
  Report Type: Spontaneous
  Country: US (occurrence: US)
  Receive Date: 20230405
  Receipt Date: 20240604
  Transmission Date: 20240716
  Serious: Yes (Other)
  Sender: FDA-Public Use
  Company Number: US-BRISTOL-MYERS SQUIBB COMPANY-2023-047302

PATIENT
  Age: 74 Year
  Sex: Female

DRUGS (13)
  1. REVLIMID [Suspect]
     Active Substance: LENALIDOMIDE
     Indication: Plasma cell myeloma
     Dosage: TAKE 1 CAPSULE BY MOUTH DAILY FOR 14 DAYS, THEN TAKE 7 DAYS OFF
     Route: 048
  2. REVLIMID [Suspect]
     Active Substance: LENALIDOMIDE
     Dosage: TAKE 1 CAPSULE BY MOUTH DAILY FOR 14 DAYS, THEN TAKE 7 DAYS OFF
     Route: 048
  3. PEPCID [Concomitant]
     Active Substance: FAMOTIDINE
     Indication: Product used for unknown indication
     Dosage: AC MAXIMUM STRENGT
  4. GLICLAZIDE [Concomitant]
     Active Substance: GLICLAZIDE
     Indication: Product used for unknown indication
  5. NORCO [Concomitant]
     Active Substance: ACETAMINOPHEN\HYDROCODONE BITARTRATE
     Indication: Product used for unknown indication
  6. GABAPENTIN [Concomitant]
     Active Substance: GABAPENTIN
     Indication: Product used for unknown indication
  7. FENOFIBRATE [Concomitant]
     Active Substance: FENOFIBRATE
     Indication: Product used for unknown indication
  8. LISINOPRIL [Concomitant]
     Active Substance: LISINOPRIL
     Indication: Product used for unknown indication
  9. BACLOFEN [Concomitant]
     Active Substance: BACLOFEN
     Indication: Product used for unknown indication
  10. FENTANYL [Concomitant]
     Active Substance: FENTANYL\FENTANYL CITRATE
     Indication: Product used for unknown indication
  11. PEPCID AC [Concomitant]
     Active Substance: FAMOTIDINE
     Indication: Product used for unknown indication
  12. PRILOSEC [Concomitant]
     Active Substance: OMEPRAZOLE MAGNESIUM
     Indication: Product used for unknown indication
  13. LEVORPHANOL TARTRATE [Concomitant]
     Active Substance: LEVORPHANOL TARTRATE
     Indication: Product used for unknown indication

REACTIONS (18)
  - Anxiety [Unknown]
  - Product dose omission issue [Unknown]
  - Restlessness [Unknown]
  - Off label use [Unknown]
  - Dizziness [Unknown]
  - Asthenia [Unknown]
  - Hyperhidrosis [Unknown]
  - Hypotension [Unknown]
  - Blood glucose decreased [Unknown]
  - Thrombosis [Unknown]
  - Eye swelling [Unknown]
  - Vision blurred [Unknown]
  - Diarrhoea [Unknown]
  - Eye infection [Unknown]
  - Eyelid infection [Unknown]
  - Abdominal pain upper [Unknown]
  - Nausea [Unknown]
  - Eating disorder symptom [Unknown]
